FAERS Safety Report 12217055 (Version 6)
Quarter: 2017Q1

REPORT INFORMATION
  Report Type: Spontaneous
  Country: JP (occurrence: JP)
  Receive Date: 20160329
  Receipt Date: 20170209
  Transmission Date: 20170428
  Serious: Yes (Death, Hospitalization, Other)
  Sender: FDA-Public Use
  Company Number: PHJP2016JP006940

PATIENT
  Age: 68 Year
  Sex: Male
  Weight: 72 kg

DRUGS (5)
  1. TALION [Concomitant]
     Active Substance: BEPOTASTINE
     Indication: PRURITUS
     Dosage: 20 MG, BID
     Route: 048
     Dates: start: 20160122
  2. ALLOPURINOL. [Concomitant]
     Active Substance: ALLOPURINOL
     Indication: PROPHYLAXIS
     Dosage: UNK
     Route: 048
  3. COSENTYX [Suspect]
     Active Substance: SECUKINUMAB
     Indication: PSORIASIS
     Dosage: 300 MG, UNK
     Route: 058
     Dates: start: 20151102
  4. COSENTYX [Suspect]
     Active Substance: SECUKINUMAB
     Dosage: 300 MG, 4W
     Route: 058
     Dates: start: 20151225
  5. COSENTYX [Suspect]
     Active Substance: SECUKINUMAB
     Dosage: 300 MG, 4W
     Route: 058
     Dates: end: 20160825

REACTIONS (21)
  - Erythema [Recovering/Resolving]
  - Haematuria [Fatal]
  - Hydronephrosis [Fatal]
  - Cellulitis [Recovered/Resolved]
  - Pyrexia [Recovering/Resolving]
  - Metastases to lymph nodes [Unknown]
  - Metastases to retroperitoneum [Unknown]
  - Diverticulum intestinal [Unknown]
  - Asthenia [Recovering/Resolving]
  - Transitional cell carcinoma [Fatal]
  - Disseminated intravascular coagulation [Fatal]
  - Dysstasia [Recovering/Resolving]
  - Metastases to bone [Unknown]
  - Dysplasia [Fatal]
  - Renal failure [Fatal]
  - Urine output decreased [Fatal]
  - Pancytopenia [Unknown]
  - Metastases to bone marrow [Unknown]
  - Pleural effusion [Unknown]
  - Atelectasis [Unknown]
  - Lymphadenopathy [Unknown]

NARRATIVE: CASE EVENT DATE: 20160322
